FAERS Safety Report 19169991 (Version 1)
Quarter: 2021Q2

REPORT INFORMATION
  Report Type: Report from Study
  Country: US (occurrence: US)
  Receive Date: 20210422
  Receipt Date: 20210422
  Transmission Date: 20210717
  Serious: Yes (Hospitalization)
  Sender: FDA-Public Use
  Company Number: US-TAKEDA-2021TUS011918

PATIENT
  Age: 44 Year
  Sex: Male

DRUGS (1)
  1. VEDOLIZUMAB [Suspect]
     Active Substance: VEDOLIZUMAB
     Indication: CROHN^S DISEASE
     Dosage: 300 MILLIGRAM, Q8WEEKS
     Route: 042
     Dates: start: 20210222

REACTIONS (4)
  - Oropharyngeal pain [Unknown]
  - Abdominal pain [Recovering/Resolving]
  - Hospitalisation [Unknown]
  - Thirst [Unknown]

NARRATIVE: CASE EVENT DATE: 20210412
